FAERS Safety Report 8389378 (Version 2)
Quarter: 2013Q1

REPORT INFORMATION
  Report Type: Spontaneous
  Country: US (occurrence: US)
  Receive Date: 20120203
  Receipt Date: 20130301
  Transmission Date: 20140127
  Serious: Yes (Other)
  Sender: FDA-Public Use
  Company Number: US-ROCHE-1034931

PATIENT
  Age: 50 Year
  Sex: Female

DRUGS (1)
  1. KETOROLAC [Suspect]
     Indication: PRODUCT USED FOR UNKNOWN INDICATION
     Dosage: SINGLE DOSE
     Route: 030

REACTIONS (2)
  - Disseminated intravascular coagulation [Unknown]
  - Purpura fulminans [Unknown]
